FAERS Safety Report 4489507-9 (Version None)
Quarter: 2004Q4

REPORT INFORMATION
  Report Type: 
  Country: None (occurrence: None)
  Receive Date: 20041101
  Receipt Date: 20041028
  Transmission Date: 20050328
  Serious: Yes (Death)
  Sender: FDA-Public Use
  Company Number: PHEH2004US11669

PATIENT
  Age: 36 Year
  Sex: Female

DRUGS (1)
  1. CLOZARIL [Suspect]
     Dosage: UNK,UNK
     Route: 048

REACTIONS (3)
  - COLONIC OBSTRUCTION [None]
  - LARGE INTESTINE PERFORATION [None]
  - MEGACOLON ACQUIRED [None]
